FAERS Safety Report 5692282-3 (Version None)
Quarter: 2008Q1

REPORT INFORMATION
  Report Type: 
  Country: None (occurrence: None)
  Receive Date: 20080331
  Receipt Date: 20080313
  Transmission Date: 20080703
  Serious: Yes (Other)
  Sender: FDA-Public Use
  Company Number: 8030384

PATIENT
  Age: 25 Month
  Sex: Female
  Weight: 11 kg

DRUGS (2)
  1. XUSAL [Suspect]
     Dosage: 0.5 DF ONCE PO
     Route: 048
  2. STILNOX /00914901/ [Suspect]
     Dosage: 5 MG ONCE PO
     Route: 048

REACTIONS (3)
  - ACCIDENTAL DRUG INTAKE BY CHILD [None]
  - DISTURBANCE IN ATTENTION [None]
  - GAIT DISTURBANCE [None]
